FAERS Safety Report 9155681 (Version 2)
Quarter: 2013Q2

REPORT INFORMATION
  Report Type: Spontaneous
  Country: US (occurrence: US)
  Receive Date: 20130311
  Receipt Date: 20130513
  Transmission Date: 20140414
  Serious: Yes (Death, Other)
  Sender: FDA-Public Use
  Company Number: US-ASTRAZENECA-2013SE15355

PATIENT
  Age: 341 Day
  Sex: Female
  Weight: 7.6 kg

DRUGS (6)
  1. SYNAGIS [Suspect]
     Indication: ANTIVIRAL PROPHYLAXIS
     Route: 030
     Dates: start: 20121119, end: 20130128
  2. SYNAGIS [Suspect]
     Indication: ANTIVIRAL PROPHYLAXIS
     Route: 030
     Dates: end: 20130205
  3. PREVACID [Concomitant]
     Indication: GASTROOESOPHAGEAL REFLUX DISEASE
     Route: 050
  4. CULTURELLE [Concomitant]
     Indication: PROBIOTIC THERAPY
     Route: 050
  5. ALDACTAZIDE [Concomitant]
     Indication: DIURETIC THERAPY
     Route: 050
  6. SYNTHROID [Concomitant]
     Indication: HYPOTHYROIDISM
     Route: 050

REACTIONS (4)
  - Pulmonary hypertensive crisis [Fatal]
  - Cardiac arrest [Fatal]
  - Loss of consciousness [Unknown]
  - Bradycardia [Unknown]
